FAERS Safety Report 7812094-1 (Version None)
Quarter: 2011Q4

REPORT INFORMATION
  Report Type: 
  Country: None (occurrence: None)
  Receive Date: 20111013
  Receipt Date: 20110928
  Transmission Date: 20120403
  Serious: Yes (Other)
  Sender: FDA-Public Use
  Company Number: PHHY2011BR86738

PATIENT
  Age: 47 Year
  Sex: Male
  Weight: 90 kg

DRUGS (3)
  1. GLYBURIDE [Suspect]
     Dosage: 5 MG, QD
  2. ATACAND [Suspect]
     Indication: HYPERTENSION
     Dosage: 16 MG, BID
  3. DIOVAN [Suspect]
     Indication: HYPERTENSION
     Dosage: 320 MG, QD

REACTIONS (1)
  - BLOOD PRESSURE INADEQUATELY CONTROLLED [None]
